FAERS Safety Report 7327629-5 (Version None)
Quarter: 2011Q1

REPORT INFORMATION
  Report Type: 
  Country: None (occurrence: None)
  Receive Date: 20110303
  Receipt Date: 20110223
  Transmission Date: 20110831
  Serious: Yes (Other)
  Sender: FDA-Public Use
  Company Number: US-ASTRAZENECA-2007UW01996

PATIENT
  Age: 21525 Day
  Sex: Male
  Weight: 108.4 kg

DRUGS (17)
  1. SEROQUEL [Suspect]
     Dosage: 25-50 MG
     Route: 048
     Dates: start: 20020624
  2. SEROQUEL [Suspect]
     Dosage: 50 MG - 100 MG
     Route: 048
     Dates: start: 20021201
  3. SEROQUEL [Suspect]
     Indication: DEPRESSION
     Dosage: 50 MG - 100 MG
     Route: 048
     Dates: start: 20020624, end: 20021201
  4. SEROQUEL [Suspect]
     Indication: FLASHBACK
     Dosage: 50 MG - 100 MG
     Route: 048
     Dates: start: 20020624, end: 20021201
  5. SEROQUEL [Suspect]
     Route: 048
     Dates: start: 20030402
  6. SEROQUEL [Suspect]
     Dosage: 50 MG - 100 MG
     Route: 048
     Dates: start: 20021201
  7. TRAZODONE HCL [Concomitant]
     Dates: end: 20020624
  8. SEROQUEL [Suspect]
     Indication: INSOMNIA
     Dosage: 50 MG - 100 MG
     Route: 048
     Dates: start: 20020624, end: 20021201
  9. SEROQUEL [Suspect]
     Route: 048
     Dates: start: 20030402
  10. NITROGLYCERIN [Concomitant]
     Dates: start: 20030502
  11. SEROQUEL [Suspect]
     Dosage: 25-50 MG
     Route: 048
     Dates: start: 20020624
  12. SEROQUEL [Suspect]
     Dosage: 25-50 MG
     Route: 048
     Dates: start: 20020624
  13. WELLBUTRIN [Concomitant]
     Dates: start: 20030402
  14. SEROQUEL [Suspect]
     Dosage: 50 MG - 100 MG
     Route: 048
     Dates: start: 20021201
  15. SEROQUEL [Suspect]
     Route: 048
     Dates: start: 20030402
  16. ZOLOFT [Concomitant]
     Dates: start: 20020624
  17. WELLBUTRIN [Concomitant]
     Dates: start: 20020624

REACTIONS (4)
  - TYPE 1 DIABETES MELLITUS [None]
  - PANCREATITIS [None]
  - DIABETIC NEPHROPATHY [None]
  - RENAL DISORDER [None]
